FAERS Safety Report 8029282-4 (Version None)
Quarter: 2012Q1

REPORT INFORMATION
  Report Type: 
  Country: None (occurrence: None)
  Receive Date: 20120106
  Receipt Date: 20120104
  Transmission Date: 20120608
  Serious: Yes (Disabling, Other)
  Sender: FDA-Public Use
  Company Number: US-PFIZER INC-2008087577

PATIENT
  Sex: Female
  Weight: 67.574 kg

DRUGS (8)
  1. LYRICA [Suspect]
     Indication: SPINAL COLUMN STENOSIS
  2. LORAZEPAM [Concomitant]
     Dosage: UNK
  3. LIPITOR [Suspect]
     Indication: BLOOD CHOLESTEROL INCREASED
     Dosage: 40 MG, 1X/DAY
     Route: 048
  4. LIPITOR [Suspect]
     Dosage: 20 MG, 1X/DAY
     Route: 048
  5. DIOVAN HCT [Concomitant]
     Dosage: 160/25 MG, UNK
  6. LYRICA [Suspect]
     Indication: PAIN
     Dosage: UNK
     Dates: start: 20080101, end: 20080101
  7. LIPITOR [Suspect]
     Dosage: UNK
  8. NEXIUM [Concomitant]
     Dosage: UNK, 1X/DAY

REACTIONS (10)
  - PAIN IN EXTREMITY [None]
  - OEDEMA PERIPHERAL [None]
  - ARTERIAL REPAIR [None]
  - NEUROPATHY PERIPHERAL [None]
  - VITAMIN B12 DEFICIENCY [None]
  - PNEUMONIA [None]
  - FLUID RETENTION [None]
  - DRY MOUTH [None]
  - SPINAL COLUMN STENOSIS [None]
  - PAIN [None]
